FAERS Safety Report 4959730-5 (Version None)
Quarter: 2006Q1

REPORT INFORMATION
  Report Type: 
  Country: None (occurrence: None)
  Receive Date: 20060327
  Receipt Date: 20060314
  Transmission Date: 20060701
  Serious: Yes (Other)
  Sender: FDA-Public Use
  Company Number: 223118

PATIENT

DRUGS (3)
  1. MABTHERA(RITUXIMAB) CONC FOR SOLUTION FOR INFUSION [Suspect]
  2. CYCLOPHOSPHAMIDE [Suspect]
  3. PREDNISOLONE [Suspect]

REACTIONS (1)
  - STEVENS-JOHNSON SYNDROME [None]
